FAERS Safety Report 7257752-5 (Version None)
Quarter: 2011Q1

REPORT INFORMATION
  Report Type: 
  Country: None (occurrence: None)
  Receive Date: 20110129
  Receipt Date: 20100510
  Transmission Date: 20110831
  Serious: No
  Sender: FDA-Public Use
  Company Number: US-ABBOTT-10P-163-0644659-00

PATIENT
  Sex: Female
  Weight: 61.29 kg

DRUGS (2)
  1. HUMIRA [Suspect]
     Indication: RHEUMATOID ARTHRITIS
     Dates: start: 20080101
  2. BONIVA [Concomitant]
     Indication: OSTEOPOROSIS
     Dates: start: 20080101

REACTIONS (3)
  - WOUND INFECTION [None]
  - ANKLE FRACTURE [None]
  - IMPAIRED HEALING [None]
